FAERS Safety Report 4917351-4 (Version None)
Quarter: 2006Q1

REPORT INFORMATION
  Report Type: 
  Country: None (occurrence: None)
  Receive Date: 20060221
  Receipt Date: 20060203
  Transmission Date: 20060701
  Serious: No
  Sender: FDA-Public Use
  Company Number: JP-MERCK-0602USA02459

PATIENT
  Age: 70 Year
  Sex: Male

DRUGS (2)
  1. PEPCID RPD [Suspect]
     Route: 048
  2. OLMESARTAN MEDOXOMIL [Suspect]
     Route: 065
     Dates: end: 20060203

REACTIONS (1)
  - PNEUMONIA BACTERIAL [None]
